FAERS Safety Report 5024460-0 (Version None)
Quarter: 2006Q2

REPORT INFORMATION
  Report Type: 
  Country: None (occurrence: None)
  Receive Date: 20060426
  Receipt Date: 20060109
  Transmission Date: 20061013
  Serious: Yes (Other)
  Sender: FDA-Public Use
  Company Number: 2005145950

PATIENT
  Age: 51 Year
  Sex: Male
  Weight: 83.9154 kg

DRUGS (7)
  1. LYRICA [Suspect]
     Indication: ILL-DEFINED DISORDER
     Dosage: (1 IN 1 D), ORAL
     Route: 048
     Dates: start: 20051014
  2. ALL OTHER THERAPEUTIC PRODUCTS (ALL OTHER THERAPEUTIC PRODUCTS) [Suspect]
     Indication: ILL-DEFINED DISORDER
  3. OXYCONTIN [Concomitant]
  4. INTERFERON (INTERFERON) [Concomitant]
  5. CHEMOTHERAPY NOS (CHEMOTHERAPY NOS) [Concomitant]
  6. CELEBREX [Concomitant]
  7. NEURONTIN [Concomitant]

REACTIONS (2)
  - FATIGUE [None]
  - INSOMNIA [None]
